FAERS Safety Report 6388921-4 (Version None)
Quarter: 2009Q4

REPORT INFORMATION
  Report Type: 
  Country: None (occurrence: None)
  Receive Date: 20091001
  Receipt Date: 20090922
  Transmission Date: 20100525
  Serious: Yes (Other)
  Sender: FDA-Public Use
  Company Number: GXKR2009IT10521

PATIENT
  Age: 80 Year
  Sex: Female

DRUGS (7)
  1. METOPROLOL            (METOPROLOL) UNKNOWN [Suspect]
     Indication: SINUS TACHYCARDIA
     Dosage: 3 MG, UNK, INTRAVENOUS
     Route: 042
  2. DOBUTAMINE                  (DOBUTAMINE) UNKNOWN [Suspect]
     Indication: STRESS ECHOCARDIOGRAM
     Dosage: 3 MG, UNK, INTRAVENOUS, INCREASED STEPWISE TO 40 PG/KG/MIN, EVERY 3 MIN, INFUSION
     Route: 042
  3. ASPIRIN [Concomitant]
  4. SIMVASTATIN [Concomitant]
  5. HEPARIN [Concomitant]
  6. RAMIPRIL (RAMPRIL) [Concomitant]
  7. NITRATES (NITRATES) [Concomitant]

REACTIONS (6)
  - ARTERIOSPASM CORONARY [None]
  - ELECTROCARDIOGRAM ST SEGMENT DEPRESSION [None]
  - ELECTROCARDIOGRAM ST SEGMENT ELEVATION [None]
  - ELECTROCARDIOGRAM T WAVE ABNORMAL [None]
  - MYOCARDIAL ISCHAEMIA [None]
  - SINUS TACHYCARDIA [None]
